FAERS Safety Report 10385610 (Version 5)
Quarter: 2014Q4

REPORT INFORMATION
  Report Type: Spontaneous
  Country: JP (occurrence: None)
  Receive Date: 20140812
  Receipt Date: 20141215
  Transmission Date: 20150528
  Serious: Yes (Hospitalization)
  Sender: FDA-Public Use
  Company Number: JP-016709

PATIENT
  Age: 71 Year
  Sex: Male

DRUGS (7)
  1. XTANDI [Suspect]
     Active Substance: ENZALUTAMIDE
     Indication: PROSTATE CANCER
     Route: 048
     Dates: start: 20140606, end: 20140717
  2. ESTRACYT [Concomitant]
     Active Substance: ESTRAMUSTINE PHOSPHATE SODIUM
  3. LEUPLIN [Concomitant]
     Active Substance: LEUPROLIDE ACETATE
  4. LOXONIN [Suspect]
     Active Substance: LOXOPROFEN SODIUM
     Indication: OROPHARYNGEAL PAIN
     Route: 048
     Dates: start: 20140701
  5. LOXONIN [Suspect]
     Active Substance: LOXOPROFEN SODIUM
     Indication: PAIN MANAGEMENT
     Route: 048
     Dates: start: 20140701
  6. FIRMAGON [Suspect]
     Active Substance: DEGARELIX ACETATE
     Indication: PROSTATE CANCER
     Route: 058
     Dates: start: 20140404
  7. RANMARK [Concomitant]
     Active Substance: DENOSUMAB

REACTIONS (7)
  - Stevens-Johnson syndrome [None]
  - Malaise [None]
  - Intentional product use issue [None]
  - Photophobia [None]
  - Prostate cancer [None]
  - Oropharyngeal pain [None]
  - Visual acuity reduced [None]

NARRATIVE: CASE EVENT DATE: 20140616
